FAERS Safety Report 6572110-4 (Version None)
Quarter: 2010Q1

REPORT INFORMATION
  Report Type: 
  Country: None (occurrence: None)
  Receive Date: 20100205
  Receipt Date: 20100123
  Transmission Date: 20100710
  Serious: Yes (Other)
  Sender: FDA-Public Use
  Company Number: PHHY2010MX04081

PATIENT
  Sex: Female

DRUGS (3)
  1. DIOVAN HCT [Suspect]
     Indication: HYPERTENSION
     Dosage: 0.5 TABLET (160/25 MG) PER DAY
     Dates: start: 20081201
  2. TAFIL [Concomitant]
     Indication: NERVOUSNESS
     Dosage: UNK
     Dates: start: 19990701
  3. INSULIN [Concomitant]
     Indication: DIABETES MELLITUS
     Dosage: UNK
     Dates: start: 20040801

REACTIONS (2)
  - FALL [None]
  - MUSCULAR WEAKNESS [None]
